FAERS Safety Report 8116605-0 (Version None)
Quarter: 2012Q1

REPORT INFORMATION
  Report Type: 
  Country: None (occurrence: None)
  Receive Date: 20120206
  Receipt Date: 20120124
  Transmission Date: 20120608
  Serious: Yes (Other)
  Sender: FDA-Public Use
  Company Number: PHHY2012IL004447

PATIENT
  Age: 55 Year
  Sex: Female

DRUGS (4)
  1. TACROLIMUS [Concomitant]
     Indication: RENAL TRANSPLANT
  2. PREDNISONE [Concomitant]
     Indication: RENAL TRANSPLANT
     Dosage: 5 MG, UNK
     Route: 048
  3. CERTICAN [Suspect]
     Indication: RENAL TRANSPLANT
     Dosage: 1.5 MG, BID
     Route: 048
  4. MYFORTIC [Suspect]
     Indication: RENAL TRANSPLANT
     Dosage: 180 MG, BID
     Route: 048

REACTIONS (2)
  - BLOOD CREATININE INCREASED [None]
  - PROTEINURIA [None]
